FAERS Safety Report 6732720-8 (Version None)
Quarter: 2010Q2

REPORT INFORMATION
  Report Type: 
  Country: None (occurrence: None)
  Receive Date: 20100519
  Receipt Date: 20100507
  Transmission Date: 20101027
  Serious: Yes (Death)
  Sender: FDA-Public Use
  Company Number: DE-SANOFI-AVENTIS-A01200903567

PATIENT
  Age: 70 Year
  Sex: Male

DRUGS (12)
  1. OXALIPLATIN [Suspect]
     Route: 042
     Dates: start: 20090325, end: 20090325
  2. OXALIPLATIN [Suspect]
     Route: 042
     Dates: start: 20090128, end: 20090128
  3. CALCIUM FOLINATE [Suspect]
     Route: 042
     Dates: start: 20090325, end: 20090325
  4. FLUOROURACIL [Suspect]
     Route: 042
     Dates: start: 20090325, end: 20090327
  5. MORPHINE [Concomitant]
     Dates: start: 20080128
  6. METAMIZOLE [Concomitant]
     Dates: start: 20080301
  7. METOCLOPRAMIDE [Concomitant]
     Dates: start: 20080101
  8. OMEPRAZOLE [Concomitant]
     Dates: start: 20080101
  9. METOHEXAL [Concomitant]
     Dates: start: 20070101
  10. DEXAMETHASONE [Concomitant]
     Dates: start: 20090325, end: 20090325
  11. GRANISETRON [Concomitant]
     Dates: start: 20090325, end: 20090325
  12. INVESTIGATIONAL DRUG [Concomitant]

REACTIONS (1)
  - RIGHT VENTRICULAR FAILURE [None]
